FAERS Safety Report 9049460 (Version 2)
Quarter: 2013Q2

REPORT INFORMATION
  Report Type: Spontaneous
  Country: US (occurrence: US)
  Receive Date: 20130205
  Receipt Date: 20130529
  Transmission Date: 20140414
  Serious: Yes (Hospitalization, Disabling)
  Sender: FDA-Public Use
  Company Number: US-GLAXOSMITHKLINE-A1009954A

PATIENT
  Age: 73 Year
  Sex: Male

DRUGS (12)
  1. PROMACTA [Suspect]
     Indication: IDIOPATHIC THROMBOCYTOPENIC PURPURA
     Dosage: 50MG PER DAY
     Route: 048
     Dates: start: 20130124, end: 20130128
  2. RITUXAN [Concomitant]
     Dates: start: 20130121
  3. PREDNISONE [Concomitant]
  4. DANOCRINE [Concomitant]
  5. PROTONIX [Concomitant]
  6. VALTREX [Concomitant]
  7. FLOMAX [Concomitant]
  8. DIFLUCAN [Concomitant]
  9. LEXAPRO [Concomitant]
  10. VESICARE [Concomitant]
  11. CORTICOSTEROIDS [Concomitant]
  12. DANAZOL [Concomitant]

REACTIONS (11)
  - Neoplasm malignant [Unknown]
  - Granulocytopenia [Unknown]
  - White blood cell count decreased [Not Recovered/Not Resolved]
  - Neutrophil count decreased [Not Recovered/Not Resolved]
  - Granulocyte count decreased [Unknown]
  - Anaemia [Unknown]
  - Fatigue [Unknown]
  - Pyrexia [Unknown]
  - Night sweats [Unknown]
  - Thrombocytopenia [Unknown]
  - Lymphadenopathy [Unknown]
